FAERS Safety Report 10149135 (Version 1)
Quarter: 2014Q2

REPORT INFORMATION
  Report Type: Spontaneous
  Country: GB (occurrence: GB)
  Receive Date: 20140502
  Receipt Date: 20140502
  Transmission Date: 20141212
  Serious: Yes (Other)
  Sender: FDA-Public Use
  Company Number: GB-JNJFOC-20140415286

PATIENT
  Age: 62 Year
  Sex: Male
  Weight: 85 kg

DRUGS (11)
  1. FENTANYL TRANSDERMAL SYSTEM [Suspect]
     Indication: BREAKTHROUGH PAIN
     Route: 062
     Dates: start: 2003
  2. ACTIQ [Suspect]
     Indication: BREAKTHROUGH PAIN
     Route: 065
  3. ACTIQ [Suspect]
     Indication: BREAKTHROUGH PAIN
     Dosage: 4 TO 5 LOZENGES PER DAY
     Route: 065
  4. ACTIQ [Suspect]
     Indication: BREAKTHROUGH PAIN
     Route: 065
     Dates: start: 2014
  5. ACTIQ [Suspect]
     Indication: BREAKTHROUGH PAIN
     Route: 065
     Dates: start: 200509
  6. LACTULOSE [Concomitant]
     Route: 065
  7. TESTOSTERONE [Concomitant]
     Route: 030
  8. SEVREDOL [Concomitant]
     Route: 065
  9. OMEPRAZOLE [Concomitant]
     Route: 065
  10. ZOLPIDEM [Concomitant]
     Route: 065
  11. LEVITRA [Concomitant]
     Route: 065

REACTIONS (1)
  - Drug dependence [Not Recovered/Not Resolved]
